FAERS Safety Report 5217973-X (Version None)
Quarter: 2007Q1

REPORT INFORMATION
  Report Type: 
  Country: None (occurrence: None)
  Receive Date: 20061130
  Receipt Date: 20060918
  Transmission Date: 20070707
  Serious: Yes (Hospitalization)
  Sender: FDA-Public Use
  Company Number: US200607001050

PATIENT
  Age: 33 Year
  Sex: Female
  Weight: 145.1 kg

DRUGS (3)
  1. ZYPREXA [Suspect]
     Indication: DEPRESSION
     Dosage: 10 MG, UNK, UNK;  5 MG, UNK, UNK
     Dates: start: 20020101, end: 20040101
  2. ZYPREXA [Suspect]
     Indication: DEPRESSION
     Dosage: 10 MG, UNK, UNK;  5 MG, UNK, UNK
     Dates: end: 20040101
  3. EFFEXOR [Concomitant]

REACTIONS (3)
  - DIABETES MELLITUS [None]
  - HYPOGLYCAEMIA [None]
  - OBESITY [None]
